FAERS Safety Report 20414192 (Version 2)
Quarter: 2022Q3

REPORT INFORMATION
  Report Type: Report from Study
  Country: NL (occurrence: NL)
  Receive Date: 20220201
  Receipt Date: 20220726
  Transmission Date: 20221027
  Serious: Yes (Life-Threatening, Other)
  Sender: FDA-Public Use
  Company Number: NL-CELLTRION HEALTHCARE HUNGARY KFT-2022NL000310

PATIENT
  Age: 48 Year
  Sex: Female

DRUGS (12)
  1. DOCETAXEL [Suspect]
     Active Substance: DOCETAXEL
     Indication: Metastatic salivary gland cancer
     Dosage: UNK
     Route: 065
  2. DOCETAXEL [Suspect]
     Active Substance: DOCETAXEL
     Indication: HER2 positive salivary gland cancer
     Dosage: 75 MILLIGRAM/SQ. METER
     Route: 065
  3. DOCETAXEL [Suspect]
     Active Substance: DOCETAXEL
     Indication: Salivary gland cancer recurrent
     Dosage: UNK
     Route: 065
  4. PERTUZUMAB [Suspect]
     Active Substance: PERTUZUMAB
     Indication: Salivary gland cancer recurrent
     Dosage: UNK
     Route: 065
  5. PERTUZUMAB [Suspect]
     Active Substance: PERTUZUMAB
     Indication: HER2 positive salivary gland cancer
     Dosage: 840 MILLIGRAM (EVERY 3 WEEKS)
     Route: 042
  6. PERTUZUMAB [Suspect]
     Active Substance: PERTUZUMAB
     Indication: Metastatic salivary gland cancer
     Dosage: 420 MILLIGRAM
     Route: 042
  7. ADO-TRASTUZUMAB EMTANSINE [Suspect]
     Active Substance: ADO-TRASTUZUMAB EMTANSINE
     Indication: Salivary gland cancer recurrent
     Dosage: UNK
     Route: 065
  8. ADO-TRASTUZUMAB EMTANSINE [Suspect]
     Active Substance: ADO-TRASTUZUMAB EMTANSINE
     Indication: HER2 positive salivary gland cancer
     Dosage: 3.6 MILLILITRE PER KILOGRAM
     Route: 042
  9. ADO-TRASTUZUMAB EMTANSINE [Suspect]
     Active Substance: ADO-TRASTUZUMAB EMTANSINE
     Indication: Metastatic salivary gland cancer
     Dosage: UNK
     Route: 065
  10. TRASTUZUMAB [Suspect]
     Active Substance: TRASTUZUMAB
     Indication: Salivary gland cancer recurrent
     Dosage: UNK
     Route: 065
  11. TRASTUZUMAB [Suspect]
     Active Substance: TRASTUZUMAB
     Indication: HER2 positive salivary gland cancer
     Dosage: UNK (EITHER INTRAVENOUSLY
     Route: 065
  12. TRASTUZUMAB [Suspect]
     Active Substance: TRASTUZUMAB
     Indication: Metastatic salivary gland cancer
     Dosage: UNK
     Route: 065

REACTIONS (23)
  - Cardiac failure [Unknown]
  - Enterocolitis infectious [Unknown]
  - Alopecia [Unknown]
  - Lymphoedema [Unknown]
  - Weight decreased [Unknown]
  - Myalgia [Unknown]
  - Aspartate aminotransferase increased [Unknown]
  - Urinary tract infection [Unknown]
  - Muscle spasms [Unknown]
  - Epistaxis [Unknown]
  - Dyspnoea [Unknown]
  - Conjunctivitis [Unknown]
  - Nail disorder [Unknown]
  - Dermatitis acneiform [Unknown]
  - Skin infection [Unknown]
  - Oedema peripheral [Unknown]
  - Dry eye [Unknown]
  - Recall phenomenon [Unknown]
  - Bone pain [Unknown]
  - Alanine aminotransferase increased [Unknown]
  - Neutrophil count decreased [Unknown]
  - Cough [Unknown]
  - Off label use [Unknown]
